FAERS Safety Report 7903555-5 (Version None)
Quarter: 2011Q4

REPORT INFORMATION
  Report Type: 
  Country: None (occurrence: None)
  Receive Date: 20111109
  Receipt Date: 20111109
  Transmission Date: 20120403
  Serious: Yes (Hospitalization)
  Sender: FDA-Public Use
  Company Number: None

PATIENT
  Age: 55 Year
  Sex: Female
  Weight: 77.11 kg

DRUGS (11)
  1. OMEPRAZOLE [Concomitant]
  2. MELOXICAM [Concomitant]
  3. TRAMADOL HCL [Concomitant]
  4. CALCIUM + D [Concomitant]
  5. AVASTIN [Suspect]
     Indication: BREAST CANCER METASTATIC
     Dosage: 15 MG/KG
     Route: 041
     Dates: start: 20090402, end: 20111017
  6. METOPROLOL SUCCINATE [Concomitant]
  7. ZOLPIDEM [Concomitant]
  8. LISINOPRIL [Concomitant]
  9. ZOLENDRONIC ACID [Concomitant]
  10. HERCEPTIN [Concomitant]
  11. AMLODIPINE [Concomitant]

REACTIONS (2)
  - PYREXIA [None]
  - COUGH [None]
